FAERS Safety Report 10376491 (Version 7)
Quarter: 2014Q4

REPORT INFORMATION
  Report Type: Report from Study
  Country: US (occurrence: US)
  Receive Date: 20140811
  Receipt Date: 20141021
  Transmission Date: 20150528
  Serious: Yes (Other)
  Sender: FDA-Public Use
  Company Number: US-SANOFI-AVENTIS-2013SA092185

PATIENT
  Age: 71 Year
  Sex: Female

DRUGS (5)
  1. AUBAGIO [Suspect]
     Active Substance: TERIFLUNOMIDE
     Indication: MULTIPLE SCLEROSIS
     Route: 048
     Dates: start: 20140828, end: 20140828
  2. AUBAGIO [Suspect]
     Active Substance: TERIFLUNOMIDE
     Indication: MULTIPLE SCLEROSIS
     Route: 048
  3. AUBAGIO [Suspect]
     Active Substance: TERIFLUNOMIDE
     Indication: MULTIPLE SCLEROSIS
     Route: 048
     Dates: start: 20140808, end: 20140822
  4. AUBAGIO [Suspect]
     Active Substance: TERIFLUNOMIDE
     Indication: MULTIPLE SCLEROSIS
     Route: 048
     Dates: start: 20140722
  5. ALL OTHER THERAPEUTIC PRODUCTS [Concomitant]
     Active Substance: UNSPECIFIED INGREDIENT

REACTIONS (30)
  - Oral herpes [Unknown]
  - Oral herpes [Unknown]
  - Dizziness [Unknown]
  - Discomfort [Unknown]
  - Palpitations [Unknown]
  - Hypoaesthesia [Unknown]
  - Eye pain [Unknown]
  - Renal disorder [Unknown]
  - Urinary tract infection [Unknown]
  - Dyspnoea [Not Recovered/Not Resolved]
  - Alopecia [Unknown]
  - Surgery [Unknown]
  - Nasopharyngitis [Unknown]
  - Neuralgia [Unknown]
  - Asthenia [Unknown]
  - Sjogren^s syndrome [Unknown]
  - Knee arthroplasty [Unknown]
  - Infection [Recovering/Resolving]
  - Headache [Unknown]
  - Dyspnoea [Unknown]
  - Heart rate abnormal [Unknown]
  - Abdominal distension [Unknown]
  - Unevaluable event [Unknown]
  - Chest pain [Unknown]
  - Chest discomfort [Unknown]
  - Paraesthesia [Unknown]
  - Condition aggravated [Unknown]
  - Multiple sclerosis relapse [Unknown]
  - Ocular rosacea [Unknown]
  - Abdominal pain upper [Unknown]

NARRATIVE: CASE EVENT DATE: 20140815
